FAERS Safety Report 6208980-9 (Version None)
Quarter: 2009Q2

REPORT INFORMATION
  Report Type: 
  Country: None (occurrence: None)
  Receive Date: 20090529
  Receipt Date: 20090520
  Transmission Date: 20091009
  Serious: Yes (Other)
  Sender: FDA-Public Use
  Company Number: PHHY2009AT19613

PATIENT
  Age: 80 Year
  Sex: Female

DRUGS (3)
  1. CALCITONIN [Suspect]
     Indication: OSTEOPOROSIS
     Dosage: FOR TWO WEEKS
     Route: 045
  2. MARCUMAR [Concomitant]
  3. RENIPRIL [Concomitant]

REACTIONS (4)
  - ATRIAL FIBRILLATION [None]
  - DEMENTIA ALZHEIMER'S TYPE [None]
  - DISORIENTATION [None]
  - MEMORY IMPAIRMENT [None]
